FAERS Safety Report 6267660-4 (Version None)
Quarter: 2009Q3

REPORT INFORMATION
  Report Type: 
  Country: None (occurrence: None)
  Receive Date: 20090714
  Receipt Date: 20090708
  Transmission Date: 20100115
  Serious: Yes (Death, Hospitalization)
  Sender: FDA-Public Use
  Company Number: PHHY2009US28144

PATIENT
  Age: 47 Year
  Sex: Male

DRUGS (7)
  1. SANDIMMUNE [Suspect]
     Indication: HEART TRANSPLANT
  2. AZATHIOPRINE [Suspect]
     Indication: HEART TRANSPLANT
  3. RAPAMYCIN [Suspect]
     Indication: HEART TRANSPLANT
  4. SIMVASTATIN [Concomitant]
  5. AMLODIPINE [Concomitant]
  6. ASPIRIN [Concomitant]
  7. CLOPIDOGREL [Concomitant]

REACTIONS (21)
  - ANURIA [None]
  - BENIGN LYMPH NODE NEOPLASM [None]
  - COMPLICATIONS OF TRANSPLANTED HEART [None]
  - CORONARY ARTERIAL STENT INSERTION [None]
  - COUGH [None]
  - DYSPNOEA [None]
  - ELECTROMECHANICAL DISSOCIATION [None]
  - EPSTEIN-BARR VIRUS ASSOCIATED LYMPHOPROLIFERATIVE DISORDER [None]
  - FOCAL SEGMENTAL GLOMERULOSCLEROSIS [None]
  - LUNG NEOPLASM [None]
  - LYMPHADENOPATHY MEDIASTINAL [None]
  - MARROW HYPERPLASIA [None]
  - METABOLIC ACIDOSIS [None]
  - NEPHROSCLEROSIS [None]
  - ORGANISING PNEUMONIA [None]
  - PANCYTOPENIA [None]
  - PRESYNCOPE [None]
  - RENAL FAILURE ACUTE [None]
  - RESPIRATORY DISTRESS [None]
  - TUMOUR LYSIS SYNDROME [None]
  - VENTRICULAR DYSFUNCTION [None]
